FAERS Safety Report 19199328 (Version 1)
Quarter: 2021Q2

REPORT INFORMATION
  Report Type: Spontaneous
  Country: GB (occurrence: GB)
  Receive Date: 20210430
  Receipt Date: 20210430
  Transmission Date: 20210717
  Serious: Yes (Other)
  Sender: FDA-Public Use
  Company Number: GB-TEVA-2021-GB-1906040

PATIENT
  Age: 40 Year
  Sex: Female
  Weight: 71 kg

DRUGS (2)
  1. BECLOMETHASONE [Suspect]
     Active Substance: BECLOMETHASONE
     Route: 065
  2. ACTIFED [Concomitant]
     Indication: SINUSITIS

REACTIONS (2)
  - Skin discolouration [Recovering/Resolving]
  - Peripheral swelling [Not Recovered/Not Resolved]

NARRATIVE: CASE EVENT DATE: 20210420
